FAERS Safety Report 10205020 (Version 1)
Quarter: 2014Q2

REPORT INFORMATION
  Report Type: Spontaneous
  Country: BR (occurrence: BR)
  Receive Date: 20140529
  Receipt Date: 20140529
  Transmission Date: 20141212
  Serious: Yes (Other)
  Sender: FDA-Public Use
  Company Number: BR-ASTRAZENECA-2014SE35435

PATIENT
  Age: 7 Year
  Sex: Male
  Weight: 32 kg

DRUGS (2)
  1. BUDESONID (BUDESONIDE) [Suspect]
     Indication: ASTHMA
     Dosage: TWO TIMES A DAY
     Route: 045
     Dates: start: 2013
  2. PULMICORT [Suspect]
     Indication: ASTHMA
     Dosage: 0.50 MG/ML TWO TIMES A DAY
     Route: 055

REACTIONS (7)
  - Cough [Recovering/Resolving]
  - Wheezing [Recovering/Resolving]
  - Fatigue [Recovering/Resolving]
  - Malaise [Recovering/Resolving]
  - Rhinorrhoea [Recovering/Resolving]
  - Off label use [Not Recovered/Not Resolved]
  - Malaise [None]
